FAERS Safety Report 5705208-0 (Version None)
Quarter: 2008Q2

REPORT INFORMATION
  Report Type: 
  Country: None (occurrence: None)
  Receive Date: 20080410
  Receipt Date: 20080403
  Transmission Date: 20081010
  Serious: Yes (Death)
  Sender: FDA-Public Use
  Company Number: E2020-02407-SPO-JP

PATIENT
  Age: 79 Year
  Sex: Female
  Weight: 33 kg

DRUGS (2)
  1. ARICEPT [Suspect]
     Indication: DEMENTIA
     Dosage: 3 MG, 1 IN 1 D, ORAL; 2 MG, 1 IN 1 D, ORAL
     Route: 048
     Dates: start: 20071220, end: 20080107
  2. ARICEPT [Suspect]
     Indication: DEMENTIA
     Dosage: 3 MG, 1 IN 1 D, ORAL; 2 MG, 1 IN 1 D, ORAL
     Route: 048
     Dates: start: 20080108, end: 20080225

REACTIONS (16)
  - ASPIRATION [None]
  - BLOOD PRESSURE DECREASED [None]
  - CEREBROVASCULAR ACCIDENT [None]
  - CHOLINERGIC SYNDROME [None]
  - DIARRHOEA [None]
  - DYSPNOEA [None]
  - GAIT DISTURBANCE [None]
  - GASTRIC DISORDER [None]
  - HALLUCINATION, VISUAL [None]
  - INCONTINENCE [None]
  - MEMORY IMPAIRMENT [None]
  - NORMAL PRESSURE HYDROCEPHALUS [None]
  - RESPIRATORY ARREST [None]
  - RESPIRATORY FAILURE [None]
  - SUDDEN DEATH [None]
  - VOMITING [None]
